FAERS Safety Report 4747275-7 (Version None)
Quarter: 2005Q3

REPORT INFORMATION
  Report Type: 
  Country: None (occurrence: None)
  Receive Date: 20050816
  Receipt Date: 20050705
  Transmission Date: 20060218
  Serious: Yes (Other)
  Sender: FDA-Public Use
  Company Number: 2005BI012861

PATIENT
  Age: 57 Year
  Sex: Female
  Weight: 35.3806 kg

DRUGS (2)
  1. AVONEX [Suspect]
     Indication: MULTIPLE SCLEROSIS
     Dosage: 30 UG; QW; IM
     Route: 030
     Dates: start: 20040101
  2. ASPIRIN [Concomitant]

REACTIONS (15)
  - ANOMALOUS PULMONARY VENOUS CONNECTION [None]
  - CARDIAC MURMUR [None]
  - CARDIOMEGALY [None]
  - CENTRAL VENOUS PRESSURE INCREASED [None]
  - CHEST PAIN [None]
  - CONDITION AGGRAVATED [None]
  - CONTUSION [None]
  - FALL [None]
  - HEART DISEASE CONGENITAL [None]
  - PULMONARY HYPERTENSION [None]
  - TREATMENT NONCOMPLIANCE [None]
  - VASCULAR SHUNT [None]
  - VENTRICULAR EXTRASYSTOLES [None]
  - VENTRICULAR TACHYCARDIA [None]
  - WEIGHT INCREASED [None]
